FAERS Safety Report 5179535-2 (Version None)
Quarter: 2006Q4

REPORT INFORMATION
  Report Type: 
  Country: None (occurrence: None)
  Receive Date: 20061219
  Receipt Date: 20060828
  Transmission Date: 20070319
  Serious: Yes (Disabling, Other)
  Sender: FDA-Public Use
  Company Number: US-ELI_LILLY_AND_COMPANY-US200608005978

PATIENT
  Age: 39 Year
  Sex: Male

DRUGS (4)
  1. HUMULIN R [Suspect]
     Indication: DIABETES MELLITUS INSULIN-DEPENDENT
     Dosage: 16 U, DAILY (1/D)
     Dates: start: 19910101
  2. HUMULIN R [Suspect]
     Dosage: 6 U, OTHER
     Dates: start: 19910101
  3. HUMULIN R [Suspect]
     Dosage: 6 U, EACH EVENING
     Dates: start: 19910101
  4. LANTUS [Concomitant]
     Indication: DIABETES MELLITUS INSULIN-DEPENDENT
     Dosage: 16 U, EACH EVENING
     Dates: start: 20030101

REACTIONS (5)
  - BLINDNESS [None]
  - DIABETIC RETINOPATHY [None]
  - EYE HAEMORRHAGE [None]
  - RETINAL DETACHMENT [None]
  - VITREOUS HAEMORRHAGE [None]
